FAERS Safety Report 9330027 (Version 1)
Quarter: 2013Q2

REPORT INFORMATION
  Report Type: Spontaneous
  Country: US (occurrence: None)
  Receive Date: 20130531
  Receipt Date: 20130531
  Transmission Date: 20140414
  Serious: Yes (Other)
  Sender: FDA-Public Use
  Company Number: 2013-198

PATIENT
  Age: 34 Year
  Sex: Male

DRUGS (5)
  1. FAZACLO [Suspect]
     Indication: SCHIZOPHRENIA
     Dates: start: 20060803, end: 20130830
  2. EFFEXOR (VENLAFAXINE HYDROCHLORIDE) UNKNOWN [Concomitant]
  3. PRISTIQ (DESVENLAFAXINE SUCCINATE) [Concomitant]
  4. COGENTIN (BENZATROPINE MESILATE) [Concomitant]
  5. PROPANOLOL (PROPANOLOL HYDROCHLORIDE) [Concomitant]

REACTIONS (4)
  - Drug level increased [None]
  - Confusional state [None]
  - Aphasia [None]
  - Fall [None]
